FAERS Safety Report 17994169 (Version 1)
Quarter: 2020Q3

REPORT INFORMATION
  Report Type: Spontaneous
  Country: US (occurrence: US)
  Receive Date: 20200707
  Receipt Date: 20200707
  Transmission Date: 20201103
  Serious: Yes (Other)
  Sender: FDA-Public Use
  Company Number: None

PATIENT
  Age: 45 Year
  Sex: Female
  Weight: 83.25 kg

DRUGS (1)
  1. NP THYROID [Suspect]
     Active Substance: LEVOTHYROXINE\LIOTHYRONINE
     Indication: HYPOTHYROIDISM
     Dosage: ?          QUANTITY:1 TABLET(S);?
     Dates: start: 20200305, end: 20200612

REACTIONS (10)
  - Hyperhidrosis [None]
  - Overdose [None]
  - Product measured potency issue [None]
  - Frustration tolerance decreased [None]
  - Temperature intolerance [None]
  - Crying [None]
  - Weight decreased [None]
  - Nervousness [None]
  - Feeling hot [None]
  - Recalled product [None]
